FAERS Safety Report 10069277 (Version 1)
Quarter: 2014Q2

REPORT INFORMATION
  Report Type: Spontaneous
  Country: US (occurrence: US)
  Receive Date: 20140409
  Receipt Date: 20140409
  Transmission Date: 20141212
  Serious: Yes (Hospitalization)
  Sender: FDA-Public Use
  Company Number: US-ASTELLAS-2014US003700

PATIENT
  Sex: Female

DRUGS (2)
  1. PROGRAF [Suspect]
     Indication: PRODUCT USED FOR UNKNOWN INDICATION
     Dosage: 1 MG EVERY MORNING AND 3 MG EVERY EVENING, 4 UID/QD
     Route: 048
  2. PROGRAF [Suspect]
     Dosage: 1 MG EVERY MORNING AND 3 MG EVERY EVENING, 4 UID/QD
     Route: 048

REACTIONS (2)
  - Investigation [Unknown]
  - Drug dose omission [Unknown]
